FAERS Safety Report 5128065-2 (Version None)
Quarter: 2006Q4

REPORT INFORMATION
  Report Type: 
  Country: None (occurrence: None)
  Receive Date: 20061010
  Receipt Date: 20061006
  Transmission Date: 20070319
  Serious: Yes (Death, Disabling)
  Sender: FDA-Public Use
  Company Number: 2006S1000176

PATIENT
  Age: 1 Year
  Sex: Male

DRUGS (13)
  1. NITRIC OXIDE [Suspect]
     Indication: LUNG DISORDER
     Dosage: 5 PPM; INH_GAS; INH; CONT
     Route: 055
     Dates: start: 20060828, end: 20060919
  2. NITRIC OXIDE [Suspect]
     Indication: PROPHYLAXIS
     Dosage: 5 PPM; INH_GAS; INH; CONT
     Route: 055
     Dates: start: 20060828, end: 20060919
  3. BENZYLPENICILLIN (BENZYLPENICILLIN) [Concomitant]
  4. GENTAMICIN [Concomitant]
  5. DOPAMINE HCL [Concomitant]
  6. INSULIN (INSULIN) [Concomitant]
  7. METRONIDAZOLE [Concomitant]
  8. CUROSURF (CUROSURF) [Concomitant]
  9. MORPHINE [Concomitant]
  10. FUROSEMIDE [Concomitant]
  11. FLUCONAZOLE [Concomitant]
  12. MEROPENEM (MEROPENEM) [Concomitant]
  13. RANITIDINE [Concomitant]

REACTIONS (20)
  - ACIDOSIS [None]
  - BRADYCARDIA NEONATAL [None]
  - CEREBRAL CYST [None]
  - CEREBRAL HAEMORRHAGE NEONATAL [None]
  - CEREBRAL THROMBOSIS [None]
  - CEREBRAL VENTRICLE DILATATION [None]
  - COLLAPSE OF LUNG [None]
  - GENERAL PHYSICAL HEALTH DETERIORATION [None]
  - HAEMOGLOBIN DECREASED [None]
  - HYPERGLYCAEMIA [None]
  - HYPOVOLAEMIA [None]
  - INTRAVENTRICULAR HAEMORRHAGE NEONATAL [None]
  - NECROTISING ENTEROCOLITIS NEONATAL [None]
  - NEONATAL DISORDER [None]
  - OEDEMA NEONATAL [None]
  - OXYGEN SATURATION DECREASED [None]
  - POST PROCEDURAL HAEMORRHAGE [None]
  - RECTAL HAEMORRHAGE [None]
  - RESPIRATORY DISORDER NEONATAL [None]
  - THROMBOCYTOPENIA NEONATAL [None]
